FAERS Safety Report 17048846 (Version 5)
Quarter: 2021Q1

REPORT INFORMATION
  Report Type: Spontaneous
  Country: US (occurrence: US)
  Receive Date: 20191119
  Receipt Date: 20210325
  Transmission Date: 20210419
  Serious: Yes (Other)
  Sender: FDA-Public Use
  Company Number: US-SA-2019SA178058

PATIENT
  Age: 56 Year
  Sex: Male

DRUGS (1)
  1. ALPROLIX [Suspect]
     Active Substance: EFTRENONACOG ALFA
     Dosage: 9000 U
     Route: 042

REACTIONS (4)
  - Haemarthrosis [Recovered/Resolved]
  - Limb injury [Recovered/Resolved]
  - Haemarthrosis [Unknown]
  - Musculoskeletal discomfort [Recovered/Resolved]

NARRATIVE: CASE EVENT DATE: 20191006
